FAERS Safety Report 15226807 (Version 2)
Quarter: 2018Q4

REPORT INFORMATION
  Report Type: Spontaneous
  Country: US (occurrence: US)
  Receive Date: 20180801
  Receipt Date: 20181220
  Transmission Date: 20190204
  Serious: Yes (Other)
  Sender: FDA-Public Use
  Company Number: US-SA-2018SA208459

PATIENT
  Age: 46 Year
  Sex: Female
  Weight: 99.7 kg

DRUGS (21)
  1. HUMALOG [Concomitant]
     Active Substance: INSULIN LISPRO
     Dosage: 100 UNIT/L
  2. PARAPLATIN [Concomitant]
     Active Substance: CARBOPLATIN
  3. HUMULIN N [Concomitant]
     Active Substance: INSULIN HUMAN
     Dosage: 100 UNIT/L
     Route: 058
  4. NEUPOGEN [Concomitant]
     Active Substance: FILGRASTIM
     Dosage: 480 UG
  5. HERCEPTIN [Concomitant]
     Active Substance: TRASTUZUMAB
     Dosage: 440 MG
     Route: 042
  6. DEXAMETHASONE. [Concomitant]
     Active Substance: DEXAMETHASONE
     Dosage: 4 MG
  7. ROGAINE [Concomitant]
     Active Substance: MINOXIDIL
     Dosage: UNK
     Dates: start: 201806
  8. VITAMIN C [Concomitant]
     Active Substance: ASCORBIC ACID
  9. MULTIVITAMINS [VITAMINS NOS] [Concomitant]
     Active Substance: VITAMINS
     Route: 048
  10. DIPHENHYDRAMINE HCL [Concomitant]
     Active Substance: DIPHENHYDRAMINE HYDROCHLORIDE
     Dosage: 50 MG/ML
  11. ONDANSETRON HCL [Concomitant]
     Active Substance: ONDANSETRON HYDROCHLORIDE
     Dosage: 8 MG
  12. LIPITOR [Concomitant]
     Active Substance: ATORVASTATIN CALCIUM
     Dosage: 40 MG
     Route: 048
  13. METOCLOPRAMIDE. [Concomitant]
     Active Substance: METOCLOPRAMIDE
     Dosage: 10 MG
  14. TAXOTERE [Suspect]
     Active Substance: DOCETAXEL
     Dosage: 140 UNK, UNK
     Route: 042
     Dates: start: 20110304, end: 20110304
  15. PRINIVIL [Concomitant]
     Active Substance: LISINOPRIL
     Dosage: 20 MG
  16. LORAZEPAM. [Concomitant]
     Active Substance: LORAZEPAM
     Dosage: 0.5 MG
  17. PROPANTHELINE [Concomitant]
     Active Substance: PROPANTHELINE
     Dosage: 15 MG
  18. ECOTRIN [Concomitant]
     Active Substance: ASPIRIN
     Route: 048
  19. SODIUM CHLORIDE. [Concomitant]
     Active Substance: SODIUM CHLORIDE
  20. TAXOTERE [Suspect]
     Active Substance: DOCETAXEL
     Indication: BREAST CANCER FEMALE
     Dosage: 140 MG, Q3W
     Route: 042
     Dates: start: 20101112, end: 20101112
  21. BAYER ASPIRIN [Concomitant]
     Active Substance: ASPIRIN

REACTIONS (1)
  - Alopecia [Not Recovered/Not Resolved]

NARRATIVE: CASE EVENT DATE: 201105
